FAERS Safety Report 4313803-9 (Version None)
Quarter: 2004Q1

REPORT INFORMATION
  Report Type: 
  Country: None (occurrence: None)
  Receive Date: 20040305
  Receipt Date: 20040227
  Transmission Date: 20041129
  Serious: Yes (Other)
  Sender: FDA-Public Use
  Company Number: 2004200970GB

PATIENT
  Sex: 0

DRUGS (1)
  1. PROSTIN E2 [Suspect]
     Indication: INDUCED LABOUR
     Dosage: 2 MG, SINGLE, DOSE, VAGINAL
     Route: 067
     Dates: start: 20040223, end: 20040223

REACTIONS (2)
  - BRADYCARDIA FOETAL [None]
  - MATERNAL DRUGS AFFECTING FOETUS [None]
